FAERS Safety Report 16022569 (Version 2)
Quarter: 2019Q1

REPORT INFORMATION
  Report Type: Spontaneous
  Country: AT (occurrence: AT)
  Receive Date: 20190301
  Receipt Date: 20190313
  Transmission Date: 20190418
  Serious: Yes (Other)
  Sender: FDA-Public Use
  Company Number: AT-ELI_LILLY_AND_COMPANY-AT201902012255

PATIENT
  Age: 62 Year
  Sex: Male

DRUGS (1)
  1. FORSTEO 250UG/ML [Suspect]
     Active Substance: TERIPARATIDE
     Indication: OSTEOPOROSIS
     Dosage: UNK, UNKNOWN
     Route: 065
     Dates: start: 20180825

REACTIONS (4)
  - Aphasia [Not Recovered/Not Resolved]
  - Transient ischaemic attack [Unknown]
  - Slow speech [Not Recovered/Not Resolved]
  - Speech disorder [Not Recovered/Not Resolved]
